FAERS Safety Report 7395201-7 (Version None)
Quarter: 2011Q2

REPORT INFORMATION
  Report Type: 
  Country: None (occurrence: None)
  Receive Date: 20110405
  Receipt Date: 20110315
  Transmission Date: 20111010
  Serious: Yes (Death, Hospitalization, Other)
  Sender: FDA-Public Use
  Company Number: US-BAYER-201018281NA

PATIENT
  Sex: Male
  Weight: 87.982 kg

DRUGS (7)
  1. BARBITURATES [Concomitant]
     Dosage: UNK
     Dates: start: 20011230
  2. BLOOD AND RELATED PRODUCTS [Concomitant]
     Indication: COAGULOPATHY
     Dosage: UNK
     Dates: start: 20011230
  3. TRASYLOL [Suspect]
     Indication: AORTIC BYPASS
     Route: 042
     Dates: start: 20011231
  4. AMICAR [Concomitant]
     Indication: COAGULOPATHY
  5. BETA BLOCKING AGENTS [Concomitant]
     Indication: HYPERTENSION
     Dosage: UNK
     Dates: start: 20020101
  6. TRASYLOL [Suspect]
     Indication: AORTIC VALVE REPLACEMENT
  7. SOLU-MEDROL [Concomitant]
     Dosage: UNK
     Dates: start: 20011230

REACTIONS (20)
  - RENAL IMPAIRMENT [None]
  - FEAR [None]
  - AORTIC VALVE INCOMPETENCE [None]
  - RENAL TUBULAR NECROSIS [None]
  - RESPIRATORY FAILURE [None]
  - RENAL INJURY [None]
  - STRESS [None]
  - HAEMORRHAGE [None]
  - HYPERTENSION [None]
  - DEATH [None]
  - RENAL FAILURE ACUTE [None]
  - ANHEDONIA [None]
  - COAGULOPATHY [None]
  - RENAL FAILURE [None]
  - PAIN [None]
  - INJURY [None]
  - ANXIETY [None]
  - MULTI-ORGAN FAILURE [None]
  - ENCEPHALOPATHY [None]
  - CHEST PAIN [None]
